FAERS Safety Report 5924577-X (Version None)
Quarter: 2008Q4

REPORT INFORMATION
  Report Type: 
  Country: None (occurrence: None)
  Receive Date: 20081020
  Receipt Date: 20081008
  Transmission Date: 20090506
  Serious: Yes (Other)
  Sender: FDA-Public Use
  Company Number: US-PFIZER INC-2008085343

PATIENT
  Sex: Male
  Weight: 78 kg

DRUGS (2)
  1. CHANTIX [Suspect]
     Indication: SMOKING CESSATION THERAPY
     Dates: start: 20080301, end: 20080927
  2. IBUPROFEN [Concomitant]

REACTIONS (10)
  - ABDOMINAL DISCOMFORT [None]
  - ABNORMAL DREAMS [None]
  - BACK PAIN [None]
  - CLUMSINESS [None]
  - DIZZINESS [None]
  - DRUG WITHDRAWAL HEADACHE [None]
  - FLATULENCE [None]
  - GAIT DISTURBANCE [None]
  - PAIN [None]
  - SOMNOLENCE [None]
